FAERS Safety Report 4845731-4 (Version None)
Quarter: 2005Q4

REPORT INFORMATION
  Report Type: 
  Country: None (occurrence: None)
  Receive Date: 20051205
  Receipt Date: 20051205
  Transmission Date: 20060501
  Serious: Yes (Hospitalization)
  Sender: FDA-Public Use
  Company Number: None

PATIENT
  Age: 80 Year
  Sex: Female

DRUGS (1)
  1. ADVAIR DISKUS 250/50 [Suspect]
     Indication: ASTHMA
     Dosage: 250/50 1 INHALATION BID
     Route: 055
     Dates: start: 20050105

REACTIONS (3)
  - ASTHMA [None]
  - CARDIAC FAILURE CONGESTIVE [None]
  - LOBAR PNEUMONIA [None]
